FAERS Safety Report 9355473 (Version 2)
Quarter: 2013Q3

REPORT INFORMATION
  Report Type: Spontaneous
  Country: US (occurrence: US)
  Receive Date: 20130619
  Receipt Date: 20130726
  Transmission Date: 20140515
  Serious: Yes (Disabling, Other)
  Sender: FDA-Public Use
  Company Number: US-JNJFOC-20130604978

PATIENT
  Sex: Female

DRUGS (1)
  1. LEVAQUIN [Suspect]
     Indication: PRODUCT USED FOR UNKNOWN INDICATION
     Route: 065
     Dates: start: 20130423

REACTIONS (2)
  - Ill-defined disorder [Not Recovered/Not Resolved]
  - Asthenia [Not Recovered/Not Resolved]
